FAERS Safety Report 8164581-7 (Version None)
Quarter: 2012Q1

REPORT INFORMATION
  Report Type: 
  Country: None (occurrence: None)
  Receive Date: 20120227
  Receipt Date: 20120222
  Transmission Date: 20120608
  Serious: Yes (Death, Other)
  Sender: FDA-Public Use
  Company Number: AU-BRISTOL-MYERS SQUIBB COMPANY-16223323

PATIENT
  Age: 65 Year

DRUGS (1)
  1. YERVOY [Suspect]
     Indication: METASTATIC MALIGNANT MELANOMA
     Dosage: FINAL INF:18OCT2011 NO.OF INF:4
     Dates: start: 20110816

REACTIONS (2)
  - CEREBRAL HAEMORRHAGE [None]
  - DEATH [None]
